FAERS Safety Report 5554827-3 (Version None)
Quarter: 2007Q4

REPORT INFORMATION
  Report Type: 
  Country: None (occurrence: None)
  Receive Date: 20071213
  Receipt Date: 20071130
  Transmission Date: 20080405
  Serious: Yes (Hospitalization, Other)
  Sender: FDA-Public Use
  Company Number: US-AMGEN-QUU247067

PATIENT
  Sex: Female
  Weight: 64 kg

DRUGS (7)
  1. ENBREL [Suspect]
     Indication: JUVENILE ARTHRITIS
     Route: 058
     Dates: start: 20040218, end: 20070901
  2. TOLECTIN [Concomitant]
  3. VIOXX [Concomitant]
  4. PREDNISONE [Concomitant]
     Route: 048
  5. ZANTAC [Concomitant]
  6. ARAVA [Concomitant]
  7. METHOTREXATE [Concomitant]
     Dates: end: 20071001

REACTIONS (18)
  - ANAEMIA [None]
  - CATARACT [None]
  - DEAFNESS NEUROSENSORY [None]
  - DEHYDRATION [None]
  - FACIAL PALSY [None]
  - FOOT FRACTURE [None]
  - HAEMATOCHEZIA [None]
  - HYPERTENSION [None]
  - MIGRAINE [None]
  - MUCOSAL INFLAMMATION [None]
  - NUCLEAR MAGNETIC RESONANCE IMAGING BRAIN ABNORMAL [None]
  - OESOPHAGITIS [None]
  - OSTEOPOROSIS [None]
  - PYREXIA [None]
  - RENAL FAILURE ACUTE [None]
  - RENAL FAILURE CHRONIC [None]
  - SUBCUTANEOUS NODULE [None]
  - WEIGHT DECREASED [None]
